FAERS Safety Report 8856698 (Version 2)
Quarter: 2012Q4

REPORT INFORMATION
  Report Type: Spontaneous
  Country: None (occurrence: None)
  Receive Date: 20121019
  Receipt Date: 20121024
  Transmission Date: 20130627
  Serious: Yes (Hospitalization, Other)
  Sender: FDA-Public Use
  Company Number: AUR-APL-2012-04450

PATIENT
  Age: 53 Year
  Sex: Female

DRUGS (2)
  1. METFORMIN (METFORMIN) [Suspect]
     Indication: DIABETES
  2. IBUPROFEN (IBUPROFEN) [Concomitant]

REACTIONS (9)
  - Abdominal pain upper [None]
  - Diarrhoea haemorrhagic [None]
  - Colitis [None]
  - Myalgia [None]
  - Vomiting [None]
  - Lactic acidosis [None]
  - Base excess [None]
  - Haemodialysis [None]
  - Blood creatinine increased [None]
